FAERS Safety Report 12073735 (Version 1)
Quarter: 2016Q1

REPORT INFORMATION
  Report Type: Spontaneous
  Country: CA (occurrence: CA)
  Receive Date: 20160212
  Receipt Date: 20160212
  Transmission Date: 20160526
  Serious: Yes (Hospitalization, Other)
  Sender: FDA-Public Use
  Company Number: CA-TEVA-633685USA

PATIENT
  Age: 45 Year
  Sex: Male

DRUGS (5)
  1. ATIVAN [Suspect]
     Active Substance: LORAZEPAM
  2. NABILONE [Concomitant]
     Active Substance: NABILONE
  3. TEVA-FENTANYL [Suspect]
     Active Substance: FENTANYL
     Indication: PAIN
     Dosage: STRENGTH IS 100MCG/HR; USES 150MCG/HR EVERY 72 HOURS ALONG WITH ONE 50MCG/HR PATCH
     Route: 062
     Dates: start: 2014
  4. TEVA-FENTANYL [Suspect]
     Active Substance: FENTANYL
     Indication: PAIN
     Dosage: STRENGTH IS 50MCG/HR; USES 150MCG/HR EVERY 72 HOURS ALONG WITH ONE 100MCG/HR PATCH
     Route: 062
     Dates: start: 2014
  5. COCAINE [Suspect]
     Active Substance: COCAINE

REACTIONS (2)
  - Coma [Unknown]
  - Inappropriate schedule of drug administration [Unknown]

NARRATIVE: CASE EVENT DATE: 20160202
